FAERS Safety Report 4541297-7 (Version None)
Quarter: 2004Q4

REPORT INFORMATION
  Report Type: 
  Country: None (occurrence: None)
  Receive Date: 20041228
  Receipt Date: 20041208
  Transmission Date: 20050328
  Serious: Yes (Life-Threatening)
  Sender: FDA-Public Use
  Company Number: 2004USFACT00170

PATIENT
  Age: 43 Year
  Sex: Female
  Weight: 65.3 kg

DRUGS (7)
  1. FACTIVE (GEMFLOXACIN MESYLATE) TABLET [Suspect]
     Indication: RESPIRATORY TRACT INFECTION BACTERIAL
     Dosage: 320.00 MG, QD, ORAL
     Route: 048
     Dates: start: 20041202, end: 20041202
  2. MUCINEX [Concomitant]
  3. MEDENT LD (GUAIFENESIN, PSEUDOEPHEDRINE) [Concomitant]
  4. WELLBUTRIN [Concomitant]
  5. SERZONE [Concomitant]
  6. FLONASE [Concomitant]
  7. ORTHO-NOVUM (MESTRANOL, NORETHISTERONE) [Concomitant]

REACTIONS (1)
  - ANAPHYLACTIC REACTION [None]
